FAERS Safety Report 24591735 (Version 1)
Quarter: 2024Q4

REPORT INFORMATION
  Report Type: Spontaneous
  Country: RO (occurrence: RO)
  Receive Date: 20241108
  Receipt Date: 20241108
  Transmission Date: 20250114
  Serious: Yes (Other)
  Sender: AMGEN
  Company Number: RO-ABBVIE-5978199

PATIENT
  Sex: Male

DRUGS (1)
  1. ADALIMUMAB [Suspect]
     Active Substance: ADALIMUMAB
     Indication: Ankylosing spondylitis
     Dosage: FOR 2 YEAR
     Route: 058
     Dates: start: 201312

REACTIONS (7)
  - Toxocariasis [Unknown]
  - Angioedema [Unknown]
  - Therapy non-responder [Unknown]
  - Mycobacterium tuberculosis complex test positive [Unknown]
  - Dermatitis allergic [Unknown]
  - Dermatitis atopic [Unknown]
  - Prurigo [Unknown]

NARRATIVE: CASE EVENT DATE: 20160101
